FAERS Safety Report 8780039 (Version 1)
Quarter: 2012Q4

REPORT INFORMATION
  Report Type: Spontaneous
  Country: US (occurrence: None)
  Receive Date: 20120831
  Receipt Date: 20120831
  Transmission Date: 20130627
  Serious: No
  Sender: FDA-Public Use
  Company Number: None

PATIENT
  Sex: Female
  Weight: 99.34 kg

DRUGS (1)
  1. ZOLOFT [Suspect]
     Dosage: Zoloft 100 one bid#60

REACTIONS (2)
  - Diarrhoea [None]
  - Drug ineffective [None]
